FAERS Safety Report 5083170-4 (Version None)
Quarter: 2006Q3

REPORT INFORMATION
  Report Type: 
  Country: None (occurrence: None)
  Receive Date: 20060818
  Receipt Date: 20060711
  Transmission Date: 20061208
  Serious: Yes (Hospitalization)
  Sender: FDA-Public Use
  Company Number: PHBS2006JP10510

PATIENT
  Sex: Male

DRUGS (1)
  1. SLOW-K [Suspect]
     Indication: HYPOKALAEMIA
     Dosage: 600 MG/DAY
     Route: 048

REACTIONS (1)
  - FAECES DISCOLOURED [None]
